FAERS Safety Report 10139756 (Version 3)
Quarter: 2014Q4

REPORT INFORMATION
  Report Type: Spontaneous
  Country: US (occurrence: US)
  Receive Date: 20140429
  Receipt Date: 20141215
  Transmission Date: 20150528
  Serious: Yes (Life-Threatening, Hospitalization)
  Sender: FDA-Public Use
  Company Number: US-BAYER-2014-060873

PATIENT
  Age: 23 Year
  Sex: Female
  Weight: 50 kg

DRUGS (1)
  1. MIRENA [Suspect]
     Active Substance: LEVONORGESTREL
     Indication: CONTRACEPTION
     Dosage: 20 MCG/24HR, CONT
     Route: 015
     Dates: start: 20110512, end: 20121114

REACTIONS (12)
  - Device dislocation [None]
  - Abdominal pain [None]
  - Medical device discomfort [None]
  - Device issue [None]
  - Anxiety [None]
  - Injury [None]
  - Infection [None]
  - Emotional distress [None]
  - Uterine perforation [None]
  - General physical health deterioration [None]
  - Anhedonia [None]
  - Abdominal pain lower [None]

NARRATIVE: CASE EVENT DATE: 201203
